FAERS Safety Report 17101620 (Version 1)
Quarter: 2019Q4

REPORT INFORMATION
  Report Type: Spontaneous
  Country: FR (occurrence: FR)
  Receive Date: 20191202
  Receipt Date: 20191202
  Transmission Date: 20200122
  Serious: Yes (Other)
  Sender: FDA-Public Use
  Company Number: FR-MYLANLABS-2019M1117100

PATIENT
  Age: 41 Year
  Sex: Female
  Weight: 63 kg

DRUGS (3)
  1. NAPROXENE                          /00256201/ [Suspect]
     Active Substance: NAPROXEN
     Indication: POLYARTHRITIS
     Dosage: 1000 MILLIGRAM, QD
     Route: 048
     Dates: start: 20190531
  2. TRAMADOL. [Suspect]
     Active Substance: TRAMADOL
     Indication: POLYARTHRITIS
     Dosage: 300 MILLIGRAM, QD
     Route: 048
     Dates: start: 20190531
  3. PREGABALIN. [Suspect]
     Active Substance: PREGABALIN
     Indication: POLYARTHRITIS
     Dosage: 150 MILLIGRAM, QD
     Route: 048
     Dates: start: 20190531

REACTIONS (1)
  - Narcolepsy [Not Recovered/Not Resolved]

NARRATIVE: CASE EVENT DATE: 20190605
